FAERS Safety Report 7392701-0 (Version None)
Quarter: 2011Q2

REPORT INFORMATION
  Report Type: 
  Country: None (occurrence: None)
  Receive Date: 20110404
  Receipt Date: 20110329
  Transmission Date: 20111010
  Serious: Yes (Other)
  Sender: FDA-Public Use
  Company Number: JP-PFIZER INC-2010009176

PATIENT
  Age: 40 Year
  Sex: Female

DRUGS (4)
  1. AMOXAN [Suspect]
     Indication: DEPRESSION
     Dosage: 75 MG, 1X/DAY
     Route: 048
     Dates: start: 20100105, end: 20100109
  2. RESLIN [Suspect]
     Indication: DEPRESSION
     Route: 048
     Dates: start: 20100105, end: 20100105
  3. ZOLOFT [Suspect]
     Indication: DEPRESSION
     Route: 048
     Dates: start: 20100105, end: 20100109
  4. REMERON [Suspect]
     Dosage: UNK
     Dates: start: 20100201, end: 20100201

REACTIONS (1)
  - DRUG ERUPTION [None]
